FAERS Safety Report 10044453 (Version 1)
Quarter: 2014Q1

REPORT INFORMATION
  Report Type: Spontaneous
  Country: GB (occurrence: GB)
  Receive Date: 20140328
  Receipt Date: 20140328
  Transmission Date: 20141002
  Serious: Yes (Hospitalization)
  Sender: FDA-Public Use
  Company Number: GB-ABBVIE-14P-167-1215384-00

PATIENT
  Age: 23 Year
  Sex: Female

DRUGS (7)
  1. HUMIRA [Suspect]
     Indication: BEHCET^S SYNDROME
     Dosage: SELF ADMINISTERED PEN
     Route: 058
     Dates: start: 20140303, end: 20140304
  2. MORPHINE SULPHATE [Concomitant]
     Indication: PAIN
     Dosage: AMPOULES, 10MG/2ML, AS REQUIRED
     Route: 042
  3. BISOPROLOL [Concomitant]
     Indication: HYPERTENSION
     Route: 048
  4. FOLIC ACID [Concomitant]
     Indication: FOLATE DEFICIENCY
     Dosage: EVERY MORNING
     Route: 048
  5. OMEPRAZOLE [Concomitant]
     Indication: STEROID THERAPY
     Dosage: EVERY MORNING
     Route: 048
  6. PREDNISOLONE [Concomitant]
     Indication: BEHCET^S SYNDROME
     Dosage: EVERY MORNING. LONG TERM.
     Route: 048
  7. TOTAL PARENTERAL NUTRITION [Concomitant]
     Indication: GASTROINTESTINAL DISORDER

REACTIONS (4)
  - Hypoaesthesia [Not Recovered/Not Resolved]
  - Back pain [Not Recovered/Not Resolved]
  - Diarrhoea [Not Recovered/Not Resolved]
  - Paraesthesia [Not Recovered/Not Resolved]
